FAERS Safety Report 5280761-2 (Version None)
Quarter: 2007Q1

REPORT INFORMATION
  Report Type: 
  Country: None (occurrence: None)
  Receive Date: 20061218
  Receipt Date: 20051116
  Transmission Date: 20070707
  Serious: Yes (Hospitalization, Other)
  Sender: FDA-Public Use
  Company Number: US200511001283

PATIENT
  Age: 54 Year
  Sex: Female

DRUGS (2)
  1. HUMALOG [Suspect]
     Indication: DIABETES MELLITUS INSULIN-DEPENDENT
     Dosage: SUBCUTANEOUS
     Route: 058
     Dates: start: 19990101
  2. HUMULIN L [Suspect]
     Indication: DIABETES MELLITUS INSULIN-DEPENDENT
     Dosage: SUBCUTANEOUS
     Route: 058
     Dates: start: 19990101

REACTIONS (3)
  - BLOOD GLUCOSE FLUCTUATION [None]
  - COMA [None]
  - HYPOGLYCAEMIA [None]
